FAERS Safety Report 18022172 (Version 1)
Quarter: 2020Q3

REPORT INFORMATION
  Report Type: Spontaneous
  Country: IT (occurrence: IT)
  Receive Date: 20200715
  Receipt Date: 20200715
  Transmission Date: 20201103
  Serious: Yes (Death, Other)
  Sender: FDA-Public Use
  Company Number: IT-CELLTRION INC.-2020IT024194

PATIENT

DRUGS (3)
  1. BENDAMUSTINE [Suspect]
     Active Substance: BENDAMUSTINE
     Indication: MARGINAL ZONE LYMPHOMA
     Dosage: 90 MG/M ON DAYS 1 TO 2, GIVEN FOR SIX 28?DAY CYCLES
     Route: 042
  2. RITUXIMAB (UNKNOWN) [Suspect]
     Active Substance: RITUXIMAB
     Indication: MARGINAL ZONE LYMPHOMA
     Dosage: 375 MG/M2 ON DAY 1, GIVEN FOR SIX 28?DAY CYCLES
     Route: 042
  3. TRIMETHOPRIM SULFAMETHOXAZOLE [Concomitant]
     Active Substance: SULFAMETHOXAZOLE\TRIMETHOPRIM
     Indication: PROPHYLAXIS
     Route: 065

REACTIONS (18)
  - Febrile neutropenia [Unknown]
  - Rash [Unknown]
  - Disease progression [Fatal]
  - Pancreatitis [Unknown]
  - Death [Fatal]
  - Disease progression [Unknown]
  - Therapeutic response decreased [Unknown]
  - Marginal zone lymphoma [Fatal]
  - Pneumonia [Unknown]
  - Nausea [Unknown]
  - Haematotoxicity [Recovered/Resolved]
  - Herpes zoster [Unknown]
  - Fatigue [Unknown]
  - Diarrhoea [Unknown]
  - Marginal zone lymphoma [Unknown]
  - Marginal zone lymphoma recurrent [Unknown]
  - Neutropenia [Unknown]
  - Toxicity to various agents [Recovered/Resolved]
